FAERS Safety Report 17881006 (Version 1)
Quarter: 2020Q2

REPORT INFORMATION
  Report Type: Spontaneous
  Country: US (occurrence: US)
  Receive Date: 20200610
  Receipt Date: 20200610
  Transmission Date: 20200714
  Serious: Yes (Life-Threatening, Hospitalization)
  Sender: FDA-Public Use
  Company Number: None

PATIENT
  Age: 22 Year
  Sex: Male

DRUGS (6)
  1. DIPHENHYDRAMINE. [Concomitant]
     Active Substance: DIPHENHYDRAMINE
  2. SUGAMMADEX [Suspect]
     Active Substance: SUGAMMADEX
     Indication: NEUROMUSCULAR BLOCKADE REVERSAL
     Dates: start: 20200103, end: 20200103
  3. EPINEPHRINE. [Concomitant]
     Active Substance: EPINEPHRINE
  4. DEXAMETHASONE. [Concomitant]
     Active Substance: DEXAMETHASONE
  5. FAMOTIDINE. [Concomitant]
     Active Substance: FAMOTIDINE
  6. VASOPRESSIN. [Concomitant]
     Active Substance: VASOPRESSIN

REACTIONS (3)
  - Anaphylactic reaction [None]
  - Bronchospasm [None]
  - Hypotension [None]

NARRATIVE: CASE EVENT DATE: 20200103
